FAERS Safety Report 6390978-1 (Version None)
Quarter: 2009Q4

REPORT INFORMATION
  Report Type: 
  Country: None (occurrence: None)
  Receive Date: 20091006
  Receipt Date: 20090925
  Transmission Date: 20100525
  Serious: No
  Sender: FDA-Public Use
  Company Number: FR-ELI_LILLY_AND_COMPANY-FR200908005620

PATIENT
  Age: 66 Year
  Sex: Male

DRUGS (1)
  1. CYMBALTA [Suspect]
     Dosage: UNK, UNKNOWN
     Route: 065

REACTIONS (1)
  - GAMMA-GLUTAMYLTRANSFERASE INCREASED [None]
